FAERS Safety Report 10078657 (Version 2)
Quarter: 2014Q2

REPORT INFORMATION
  Report Type: Spontaneous
  Country: US (occurrence: None)
  Receive Date: 20140411
  Receipt Date: 20140521
  Transmission Date: 20141212
  Serious: Yes (Other)
  Sender: FDA-Public Use
  Company Number: 2014-US-000423

PATIENT
  Age: 15 Year
  Sex: Male

DRUGS (6)
  1. XYREM [Suspect]
     Indication: NARCOLEPSY
     Route: 048
     Dates: start: 201312
  2. XYREM [Suspect]
     Indication: CATAPLEXY
     Route: 048
     Dates: start: 201312
  3. EFFEXOR (VENLAFAXINE HYDROCHLORIDE) UNKNOWN [Suspect]
     Indication: PRODUCT USED FOR UNKNOWN INDICATION
     Route: 048
  4. PROVIGIL [Suspect]
     Indication: PRODUCT USED FOR UNKNOWN INDICATION
  5. INDERAL [Suspect]
     Indication: FORMICATION
     Route: 048
  6. ZOFRAN (ONDANSETRON HYDROCHLORIDE) [Concomitant]

REACTIONS (10)
  - Syncope [None]
  - Heart rate decreased [None]
  - Depression [None]
  - Feeling abnormal [None]
  - Nausea [None]
  - Vomiting [None]
  - Tremor [None]
  - Diarrhoea [None]
  - Formication [None]
  - Off label use [None]
